FAERS Safety Report 8374686-3 (Version None)
Quarter: 2012Q2

REPORT INFORMATION
  Report Type: 
  Country: None (occurrence: None)
  Receive Date: 20120521
  Receipt Date: 20110725
  Transmission Date: 20120825
  Serious: No
  Sender: FDA-Public Use
  Company Number: US-ASTRAZENECA-2011SE53693

PATIENT
  Sex: Female

DRUGS (4)
  1. ASPIRIN [Concomitant]
     Dosage: UNKNOWN
  2. VITAMIN D [Concomitant]
     Dosage: UNKNOWN
  3. PRILOSEC OTC [Suspect]
     Indication: CHEST PAIN
     Route: 048
     Dates: start: 20110713, end: 20110725
  4. MULTI-VITAMIN [Concomitant]
     Dosage: UNKNOWN

REACTIONS (2)
  - ABDOMINAL DISTENSION [None]
  - RENAL PAIN [None]
